FAERS Safety Report 9683506 (Version 2)
Quarter: 2013Q4

REPORT INFORMATION
  Report Type: Report from Study
  Country: TW (occurrence: TW)
  Receive Date: 20131112
  Receipt Date: 20131114
  Transmission Date: 20140711
  Serious: Yes (Other)
  Sender: FDA-Public Use
  Company Number: PHHY2013TW127627

PATIENT
  Age: 23 Year
  Sex: Male
  Weight: 49.2 kg

DRUGS (28)
  1. AMN107 [Suspect]
     Indication: CHRONIC MYELOID LEUKAEMIA
     Dosage: 800 MG, UNK
     Dates: start: 20110630, end: 20120821
  2. AMN107 [Suspect]
     Dosage: 400 MG, UNK
     Dates: start: 20120822, end: 20120918
  3. AMN107 [Suspect]
     Dosage: 800 MG, UNK
     Dates: start: 20120919, end: 20121204
  4. AMN107 [Suspect]
     Dosage: 800 MG, PER DAY
     Route: 048
     Dates: start: 20121209
  5. LOPERAMIDE [Concomitant]
     Indication: IRRITABLE BOWEL SYNDROME
     Dates: start: 20110602, end: 20110615
  6. CATAFLAM [Concomitant]
     Indication: PAIN
     Dosage: UNK UKN, UNK
     Dates: start: 20120209, end: 20120213
  7. CATAFLAM [Concomitant]
     Indication: DYSURIA
     Dosage: UNK UKN, UNK
     Dates: start: 20120331, end: 20120407
  8. SECORIN [Concomitant]
     Indication: ANXIETY
     Dates: start: 20120209, end: 20120213
  9. THIAMPHENICOL [Concomitant]
     Indication: DYSURIA
     Dates: start: 20120331, end: 20120407
  10. DEXALTIN [Concomitant]
     Indication: MOUTH ULCERATION
     Dosage: UNK UKN, UNK
     Dates: start: 20120502, end: 20120516
  11. DEXALTIN [Concomitant]
     Dosage: UNK UKN, UNK
     Dates: start: 20120530, end: 20120613
  12. BENTYL [Concomitant]
     Indication: ABDOMINAL PAIN
     Dates: start: 20120919, end: 20120921
  13. MUCAINE [Concomitant]
     Indication: ABDOMINAL PAIN
     Dates: start: 20120919, end: 20120921
  14. URSODEOXYCHOLIC ACID [Concomitant]
     Indication: HYPERBILIRUBINAEMIA
     Dosage: 100 MG, TID
     Dates: start: 20120822, end: 20120905
  15. URSODEOXYCHOLIC ACID [Concomitant]
     Indication: LIVER DISORDER
  16. MELOXICAM [Concomitant]
     Indication: UPPER RESPIRATORY TRACT INFECTION
     Dates: start: 20121016, end: 20121019
  17. MEDICON                            /02167701/ [Concomitant]
     Indication: UPPER RESPIRATORY TRACT INFECTION
     Dosage: UNK UKN, UNK
     Dates: start: 20121016, end: 20121019
  18. MEFENAMIC [Concomitant]
     Indication: UPPER RESPIRATORY TRACT INFECTION
     Dates: start: 20121016, end: 20121019
  19. FAMOTIDINE [Concomitant]
     Indication: UPPER RESPIRATORY TRACT INFECTION
     Dates: start: 20121016, end: 20121019
  20. DENOSIN [Concomitant]
     Indication: UPPER RESPIRATORY TRACT INFECTION
     Dosage: UNK UKN, UNK
     Dates: start: 20121016, end: 20121019
  21. ACETEINE [Concomitant]
     Indication: TRACHEITIS
     Dates: start: 20130508, end: 20130513
  22. BROWN MIXTURE                      /01682301/ [Concomitant]
     Indication: TRACHEITIS
     Dates: start: 20130508, end: 20130513
  23. TRICODEX [Concomitant]
     Indication: ECZEMA
     Dates: start: 20130624, end: 20130708
  24. TRICODEX [Concomitant]
     Indication: FOLLICULITIS
  25. DOXYCYCLINE [Concomitant]
     Indication: ECZEMA
     Dates: start: 20130624, end: 20130708
  26. DOXYCYCLINE [Concomitant]
     Indication: FOLLICULITIS
  27. BUCLIZINE [Concomitant]
     Indication: ECZEMA
     Dates: start: 20130624, end: 20130708
  28. BUCLIZINE [Concomitant]
     Indication: FOLLICULITIS

REACTIONS (1)
  - Chronic hepatitis [Recovered/Resolved with Sequelae]
